FAERS Safety Report 8356001-4 (Version None)
Quarter: 2012Q2

REPORT INFORMATION
  Report Type: 
  Country: None (occurrence: None)
  Receive Date: 20120514
  Receipt Date: 20120511
  Transmission Date: 20120825
  Serious: No
  Sender: FDA-Public Use
  Company Number: US-PFIZER INC-2012115712

PATIENT
  Sex: Female
  Weight: 98.866 kg

DRUGS (4)
  1. PRISTIQ [Suspect]
     Indication: DOPAMINERGIC DRUG THERAPY
     Dosage: 50 MG, DAILY
     Dates: start: 20120401
  2. ABILIFY [Concomitant]
     Indication: DOPAMINERGIC DRUG THERAPY
     Dosage: 10 MG, DAILY
  3. VILAZODONE HYDROCHLORIDE [Suspect]
     Indication: DOPAMINERGIC DRUG THERAPY
     Dosage: UNK
     Dates: start: 20120401, end: 20120101
  4. CLONAZEPAM [Concomitant]
     Indication: SLEEP DISORDER
     Dosage: UNK, AS NEEDED

REACTIONS (10)
  - MALAISE [None]
  - ASTHENIA [None]
  - ACTIVITIES OF DAILY LIVING IMPAIRED [None]
  - WEIGHT INCREASED [None]
  - FLATULENCE [None]
  - ABDOMINAL DISTENSION [None]
  - VOMITING [None]
  - INSOMNIA [None]
  - PAIN [None]
  - NAUSEA [None]
